FAERS Safety Report 9361303 (Version 2)
Quarter: 2013Q3

REPORT INFORMATION
  Report Type: Spontaneous
  Country: IT (occurrence: IT)
  Receive Date: 20130621
  Receipt Date: 20130709
  Transmission Date: 20140515
  Serious: No
  Sender: FDA-Public Use
  Company Number: IT-MERCK-1306ITA009267

PATIENT
  Sex: 0

DRUGS (1)
  1. JANUMET [Suspect]
     Dosage: UNK
     Route: 048
     Dates: start: 2010

REACTIONS (1)
  - Transaminases increased [Unknown]
